FAERS Safety Report 4387783-4 (Version None)
Quarter: 2004Q2

REPORT INFORMATION
  Report Type: 
  Country: None (occurrence: None)
  Receive Date: 20040630
  Receipt Date: 20040628
  Transmission Date: 20050107
  Serious: Yes (Other)
  Sender: FDA-Public Use
  Company Number: US-GLAXOSMITHKLINE-A0516386A

PATIENT
  Sex: Male

DRUGS (1)
  1. AVANDIA [Suspect]
     Indication: ILL-DEFINED DISORDER
     Route: 048

REACTIONS (4)
  - PAIN OF SKIN [None]
  - PSORIASIS [None]
  - SKIN FISSURES [None]
  - SKIN INFLAMMATION [None]
